FAERS Safety Report 4320937-1 (Version None)
Quarter: 2004Q1

REPORT INFORMATION
  Report Type: 
  Country: None (occurrence: None)
  Receive Date: 20040322
  Receipt Date: 20040322
  Transmission Date: 20041129
  Serious: No
  Sender: FDA-Public Use
  Company Number: None

PATIENT

DRUGS (1)
  1. AUGMENTIN '875' [Suspect]
     Dosage: 1 PO BID ORAL
     Route: 048

REACTIONS (1)
  - MEDICATION ERROR [None]
